FAERS Safety Report 25341298 (Version 1)
Quarter: 2025Q2

REPORT INFORMATION
  Report Type: Spontaneous
  Country: US (occurrence: None)
  Receive Date: 20250521
  Receipt Date: 20250521
  Transmission Date: 20250717
  Serious: Yes (Hospitalization)
  Sender: FDA-CTU
  Company Number: None

PATIENT
  Age: 61 Year
  Sex: Male
  Weight: 89 kg

DRUGS (8)
  1. CYCLOPHOSPHAMIDE [Suspect]
     Active Substance: CYCLOPHOSPHAMIDE
  2. CYTARABINE [Suspect]
     Active Substance: CYTARABINE
  3. DEXAMETHASONE [Suspect]
     Active Substance: DEXAMETHASONE
  4. DOXORUBICIN HYDROCHLORIDE [Suspect]
     Active Substance: DOXORUBICIN HYDROCHLORIDE
  5. MESNA [Suspect]
     Active Substance: MESNA
  6. METHOTREXATE [Suspect]
     Active Substance: METHOTREXATE
  7. PONATINIB [Suspect]
     Active Substance: PONATINIB
  8. VINCRISTINE SULFATE [Suspect]
     Active Substance: VINCRISTINE SULFATE

REACTIONS (6)
  - Back pain [None]
  - Groin pain [None]
  - Pain in extremity [None]
  - Arthralgia [None]
  - Inadequate analgesia [None]
  - Spinal osteoarthritis [None]

NARRATIVE: CASE EVENT DATE: 20250217
